FAERS Safety Report 11621515 (Version 2)
Quarter: 2016Q3

REPORT INFORMATION
  Report Type: Report from Study
  Country: BR (occurrence: BR)
  Receive Date: 20151013
  Receipt Date: 20160728
  Transmission Date: 20161109
  Serious: Yes (Death, Hospitalization, Other)
  Sender: FDA-Public Use
  Company Number: BR-ROCHE-1642561

PATIENT
  Sex: Female
  Weight: 64 kg

DRUGS (49)
  1. MABTHERA [Suspect]
     Active Substance: RITUXIMAB
     Dosage: LATEST INFUSION WAS GIVEN ON 14/AUG/2013
     Route: 042
  2. DIURISA [Concomitant]
     Active Substance: AMILORIDE HYDROCHLORIDE\FUROSEMIDE
     Indication: POLYURIA
     Route: 065
  3. LACTULONA [Concomitant]
  4. OMEPRAZOLE. [Concomitant]
     Active Substance: OMEPRAZOLE
  5. OMEPRAZOLE. [Concomitant]
     Active Substance: OMEPRAZOLE
     Indication: GASTRIC DISORDER
     Route: 065
  6. ACECLOFENAC [Concomitant]
     Active Substance: ACECLOFENAC
     Route: 065
  7. PREDNISONE. [Concomitant]
     Active Substance: PREDNISONE
     Route: 065
  8. MABTHERA [Suspect]
     Active Substance: RITUXIMAB
     Indication: RHEUMATOID ARTHRITIS
     Route: 042
     Dates: start: 20081117, end: 20081117
  9. CYCLOBENZAPRINE [Concomitant]
     Active Substance: CYCLOBENZAPRINE
     Route: 065
  10. PENICILLAMINE [Concomitant]
     Active Substance: PENICILLAMINE
     Indication: RHEUMATOID ARTHRITIS
     Route: 065
  11. PENTALAC [Concomitant]
     Active Substance: LACTULOSE
     Indication: HEPATIC ENCEPHALOPATHY
  12. DOMPERIDONE [Concomitant]
     Active Substance: DOMPERIDONE
     Dosage: WHEN NECESSARY
     Route: 065
  13. AMLODIPINE [Concomitant]
     Active Substance: AMLODIPINE BESYLATE
     Route: 065
  14. ACETAMINOPHEN. [Concomitant]
     Active Substance: ACETAMINOPHEN
     Indication: PREMEDICATION
  15. HIGROTON [Concomitant]
     Active Substance: CHLORTHALIDONE
  16. LOSARTAN. [Concomitant]
     Active Substance: LOSARTAN
  17. TRAMAL [Concomitant]
     Active Substance: TRAMADOL
     Indication: PAIN
     Route: 065
  18. COLLYRIUM (DRUG NAME UNKNOWN) [Concomitant]
  19. LYRICA [Concomitant]
     Active Substance: PREGABALIN
     Route: 065
  20. LOSARTAN. [Concomitant]
     Active Substance: LOSARTAN
     Indication: HYPERTENSION
     Dosage: DRUG: LOSARTANA
     Route: 065
  21. BAMIFIX [Concomitant]
     Active Substance: BAMIFYLLINE HYDROCHLORIDE
  22. LOSARTAN. [Concomitant]
     Active Substance: LOSARTAN
     Route: 065
  23. PREGABALIN. [Concomitant]
     Active Substance: PREGABALIN
     Indication: FIBROMYALGIA
     Route: 065
  24. MABTHERA [Suspect]
     Active Substance: RITUXIMAB
     Route: 042
     Dates: start: 20081204, end: 20081204
  25. MABTHERA [Suspect]
     Active Substance: RITUXIMAB
     Dosage: ROUTE: ENDOVENOUS; DOSE: 100MG/10ML, FREQUENCY: 1000 MG, SECOND INFUSION WAS GIVEN ON 01 OCT 2012.
     Route: 042
     Dates: start: 20100601, end: 20110817
  26. AZITHROMYCIN ANHYDROUS. [Suspect]
     Active Substance: AZITHROMYCIN ANHYDROUS
     Indication: ASTHMA
  27. TRAMAL [Concomitant]
     Active Substance: TRAMADOL
     Indication: PAIN
     Route: 065
  28. TYLENOL [Concomitant]
     Active Substance: ACETAMINOPHEN
     Indication: PAIN
     Route: 065
  29. LIPLESS [Concomitant]
     Active Substance: CIPROFIBRATE
     Route: 065
  30. NEOMYCIN [Concomitant]
     Active Substance: NEOMYCIN
  31. BUSCOPAN [Concomitant]
     Active Substance: BUTYLSCOPOLAMINE BROMIDE
  32. TYLENOL [Concomitant]
     Active Substance: ACETAMINOPHEN
     Route: 065
  33. CELEBRA [Concomitant]
     Active Substance: CELECOXIB
     Indication: PAIN
     Route: 065
  34. DIUPRESS [Concomitant]
     Route: 065
  35. AZITHROMYCIN ANHYDROUS. [Suspect]
     Active Substance: AZITHROMYCIN ANHYDROUS
     Indication: NASOPHARYNGITIS
     Route: 065
  36. DICLOFENAC [Concomitant]
     Active Substance: DICLOFENAC
     Route: 065
  37. OMEPRAZOLE. [Concomitant]
     Active Substance: OMEPRAZOLE
     Route: 065
  38. NEOMYCIN [Concomitant]
     Active Substance: NEOMYCIN
     Indication: GASTROINTESTINAL DISORDER
     Route: 065
  39. PREDNISONE. [Concomitant]
     Active Substance: PREDNISONE
     Indication: PAIN
     Route: 065
  40. DEPURA [Concomitant]
     Active Substance: CHOLECALCIFEROL
     Indication: IMMUNODEFICIENCY
  41. ALDACTONE (BRAZIL) [Concomitant]
     Route: 065
  42. SUPRADYN [Concomitant]
     Active Substance: ASCORBIC ACID\MINERALS\VITAMINS
  43. PENTALAC [Concomitant]
     Active Substance: LACTULOSE
     Indication: GASTROINTESTINAL DISORDER
     Dosage: 3 OR 4 TIMES/DAY, OTHER INDICATION STOMACH CRISIS
     Route: 065
  44. DOMPERIDONE [Concomitant]
     Active Substance: DOMPERIDONE
     Dosage: INDICATION: STOMACH CRISIS
     Route: 065
  45. CORTISONE [Concomitant]
     Active Substance: CORTISONE\HYDROCORTISONE
     Route: 065
  46. AVAMYS [Concomitant]
     Active Substance: FLUTICASONE FUROATE
  47. DIUREX (BRAZIL) [Concomitant]
     Route: 065
  48. DIUPRESS [Concomitant]
  49. NEXIUM [Concomitant]
     Active Substance: ESOMEPRAZOLE MAGNESIUM
     Indication: GASTRITIS

REACTIONS (15)
  - Mass [Unknown]
  - Seizure [Unknown]
  - Gastric disorder [Not Recovered/Not Resolved]
  - Weight decreased [Unknown]
  - Aspiration bronchial [Unknown]
  - Spinal fracture [Unknown]
  - Arthropathy [Unknown]
  - Cataract [Not Recovered/Not Resolved]
  - Dizziness [Unknown]
  - Pelvic fracture [Unknown]
  - Upper limb fracture [Unknown]
  - Fall [Unknown]
  - Septic shock [Fatal]
  - Pneumonia [Unknown]
  - Gait disturbance [Not Recovered/Not Resolved]
